FAERS Safety Report 5129152-5 (Version None)
Quarter: 2006Q4

REPORT INFORMATION
  Report Type: 
  Country: None (occurrence: None)
  Receive Date: 20061011
  Receipt Date: 20061003
  Transmission Date: 20070319
  Serious: Yes (Hospitalization)
  Sender: FDA-Public Use
  Company Number: CA-2006-024089

PATIENT
  Age: 32 Year
  Sex: Female

DRUGS (1)
  1. MIRENA [Suspect]
     Indication: CONTRACEPTION
     Dosage: 20 UG/DAY, CONT, INTRA-UTERINE
     Route: 015
     Dates: start: 20060131, end: 20060815

REACTIONS (10)
  - ARTERY DISSECTION [None]
  - ASTHENIA [None]
  - BRAIN COMPRESSION [None]
  - CLUMSINESS [None]
  - DYSARTHRIA [None]
  - FACIAL PARESIS [None]
  - HEMIPLEGIA [None]
  - MUSCULAR WEAKNESS [None]
  - SENSORY LOSS [None]
  - THALAMIC INFARCTION [None]
